FAERS Safety Report 13188968 (Version 1)
Quarter: 2017Q1

REPORT INFORMATION
  Report Type: Spontaneous
  Country: US (occurrence: US)
  Receive Date: 20170203
  Receipt Date: 20170203
  Transmission Date: 20170509
  Serious: Yes (Hospitalization)
  Sender: FDA-Public Use
  Company Number: None

PATIENT
  Age: 69 Year
  Sex: Male
  Weight: 124.2 kg

DRUGS (2)
  1. HYDROCHLOROTHIAZIDE. [Suspect]
     Active Substance: HYDROCHLOROTHIAZIDE
     Indication: HYPERTENSION
     Route: 048
     Dates: start: 20110414, end: 20161107
  2. CARVEDILOL. [Suspect]
     Active Substance: CARVEDILOL
     Indication: HYPERTENSION
     Route: 048
     Dates: start: 20140918, end: 20161107

REACTIONS (6)
  - Hyponatraemia [None]
  - Presyncope [None]
  - Dizziness [None]
  - Headache [None]
  - Orthostatic hypotension [None]
  - Hypomagnesaemia [None]

NARRATIVE: CASE EVENT DATE: 20161107
